FAERS Safety Report 5447190-X (Version None)
Quarter: 2007Q3

REPORT INFORMATION
  Report Type: 
  Country: None (occurrence: None)
  Receive Date: 20070910
  Receipt Date: 20070903
  Transmission Date: 20080115
  Serious: Yes (Other)
  Sender: FDA-Public Use
  Company Number: PHNU2007PL03043

PATIENT

DRUGS (1)
  1. ELIDEL [Suspect]

REACTIONS (2)
  - ENDOCRINE DISORDER [None]
  - PITUITARY TUMOUR BENIGN [None]
